FAERS Safety Report 4916474-3 (Version None)
Quarter: 2006Q1

REPORT INFORMATION
  Report Type: 
  Country: None (occurrence: None)
  Receive Date: 20060220
  Receipt Date: 20060213
  Transmission Date: 20060701
  Serious: Yes (Other)
  Sender: FDA-Public Use
  Company Number: NL-SOLVAY-00206000561

PATIENT
  Age: 77 Year
  Sex: Female

DRUGS (1)
  1. COVERSYL [Suspect]
     Indication: ILL-DEFINED DISORDER
     Dosage: DAILY DOSE: 4 MILLIGRAM(S)
     Route: 048
     Dates: start: 20050401

REACTIONS (2)
  - ANGIONEUROTIC OEDEMA [None]
  - MACULAR DEGENERATION [None]
